FAERS Safety Report 25374307 (Version 1)
Quarter: 2025Q2

REPORT INFORMATION
  Report Type: Spontaneous
  Country: US (occurrence: None)
  Receive Date: 20250528
  Receipt Date: 20250528
  Transmission Date: 20250716
  Serious: Yes (Other)
  Sender: FDA-CTU
  Company Number: None

PATIENT
  Age: 70 Year
  Sex: Female
  Weight: 83.01 kg

DRUGS (8)
  1. RECLAST [Suspect]
     Active Substance: ZOLEDRONIC ACID
     Indication: Osteoporosis
  2. Triayterene [Concomitant]
  3. Amlodipine Besylate 2.5 [Concomitant]
  4. VITAMIN C [Concomitant]
     Active Substance: ASCORBIC ACID
  5. VITAMIN D NOS [Concomitant]
     Active Substance: CHOLECALCIFEROL\ERGOCALCIFEROL
  6. Hyland Leg Cramps [Concomitant]
  7. Life Leg Cramps [Concomitant]
  8. Hair + Nails [Concomitant]

REACTIONS (2)
  - Influenza like illness [None]
  - Infusion related reaction [None]
